FAERS Safety Report 16127188 (Version 1)
Quarter: 2019Q2

REPORT INFORMATION
  Report Type: Spontaneous
  Country: US (occurrence: US)
  Receive Date: 20190327
  Receipt Date: 20190327
  Transmission Date: 20190711
  Serious: Yes (Death, Life-Threatening, Hospitalization)
  Sender: FDA-Public Use
  Company Number: None

PATIENT
  Age: 62 Year
  Sex: Male
  Weight: 72 kg

DRUGS (3)
  1. MELATONIN [Concomitant]
     Active Substance: MELATONIN
  2. ADVAIR DISKUS [Concomitant]
     Active Substance: FLUTICASONE PROPIONATE\SALMETEROL XINAFOATE
  3. KEYTRUDA [Suspect]
     Active Substance: PEMBROLIZUMAB
     Indication: LUNG CARCINOMA CELL TYPE UNSPECIFIED STAGE IV
     Dosage: ?          OTHER STRENGTH:UNKNOWN;QUANTITY:1 IV;?
     Route: 042
     Dates: start: 20181207, end: 20181207

REACTIONS (13)
  - Lung infection [None]
  - Hemiparesis [None]
  - Asthenia [None]
  - Cerebrovascular accident [None]
  - Pneumonitis [None]
  - Hepatic enzyme increased [None]
  - Dysphagia [None]
  - Blood glucose increased [None]
  - Dyspnoea [None]
  - Platelet count decreased [None]
  - Fluid retention [None]
  - Peripheral swelling [None]
  - Immune system disorder [None]

NARRATIVE: CASE EVENT DATE: 20181217
